FAERS Safety Report 9729040 (Version 1)
Quarter: 2013Q4

REPORT INFORMATION
  Report Type: Spontaneous
  Country: US (occurrence: US)
  Receive Date: 20131204
  Receipt Date: 20131204
  Transmission Date: 20140711
  Serious: Yes (Other)
  Sender: FDA-Public Use
  Company Number: PHEH2013US024806

PATIENT
  Sex: Female

DRUGS (12)
  1. CARBIDOPA,ENTACAPONE,LEVODOPA [Suspect]
     Dosage: 200/25/100 (UNIT UNSPECIFIED) 5 TIME A DAY
  2. CARBIDOPA,ENTACAPONE,LEVODOPA [Suspect]
     Dosage: 200/25/100 (UNIT UNSPECIFIED) 6 TIMES A DAY
  3. AMANTADINE [Suspect]
     Dosage: UNK UKN, UNK
  4. FLUOXETINE [Suspect]
     Dosage: UNK UKN, UNK
  5. ORENCIA [Suspect]
     Dosage: UNK UKN, UNK
  6. SINEMET [Concomitant]
     Dosage: HS
  7. METHOTREXATE [Concomitant]
     Dosage: 15 MG, (1X/WK)
  8. ANTIEMETICS [Concomitant]
     Dosage: 4 MG, PRN
  9. VITAMIN B COMPLEX [Concomitant]
     Dosage: UNK UKN, UNK
  10. CENTRUM SILVER [Concomitant]
     Dosage: UNK UKN, UNK
  11. CITRICAL//CALCIUM [Concomitant]
     Dosage: UNK UKN, UNK
  12. ACIFOL//FOLIC ACID [Concomitant]
     Dosage: 800 UG, BID

REACTIONS (10)
  - Rheumatoid arthritis [Unknown]
  - Spinal fracture [Unknown]
  - Latent tuberculosis [Unknown]
  - Muscular weakness [Unknown]
  - Freezing phenomenon [Unknown]
  - Coordination abnormal [Unknown]
  - Asthenia [Unknown]
  - Vision blurred [Unknown]
  - Tremor [Unknown]
  - Drug effect decreased [Unknown]
